FAERS Safety Report 4889340-X (Version None)
Quarter: 2006Q1

REPORT INFORMATION
  Report Type: 
  Country: None (occurrence: None)
  Receive Date: 20060120
  Receipt Date: 20060105
  Transmission Date: 20060701
  Serious: Yes (Other)
  Sender: FDA-Public Use
  Company Number: 2005-02656

PATIENT
  Age: 74 Year
  Sex: Female
  Weight: 41.7 kg

DRUGS (1)
  1. VELCADE [Suspect]
     Indication: BONE NEOPLASM MALIGNANT
     Dates: start: 20051006, end: 20051117

REACTIONS (5)
  - ANAEMIA [None]
  - DIARRHOEA [None]
  - NAUSEA [None]
  - NEUROPATHY PERIPHERAL [None]
  - TREATMENT RELATED SECONDARY MALIGNANCY [None]
